FAERS Safety Report 10054740 (Version 1)
Quarter: 2014Q2

REPORT INFORMATION
  Report Type: Spontaneous
  Country: US (occurrence: US)
  Receive Date: 20140402
  Receipt Date: 20140402
  Transmission Date: 20141212
  Serious: No
  Sender: FDA-Public Use
  Company Number: US-AMGEN-USASP2014022354

PATIENT
  Sex: Female

DRUGS (1)
  1. ENBREL [Suspect]
     Indication: PRODUCT USED FOR UNKNOWN INDICATION
     Dosage: UNK
     Route: 065
     Dates: start: 2009

REACTIONS (5)
  - Scratch [Unknown]
  - Rash macular [Unknown]
  - Skin infection [Unknown]
  - Injection site erythema [Unknown]
  - Injection site pruritus [Unknown]
